FAERS Safety Report 10653850 (Version 1)
Quarter: 2014Q4

REPORT INFORMATION
  Report Type: Spontaneous
  Country: US (occurrence: None)
  Receive Date: 20141205
  Receipt Date: 20141205
  Transmission Date: 20150529
  Serious: Yes (Hospitalization)
  Sender: FDA-Public Use
  Company Number: 163-POMAL-14083706

PATIENT
  Age: 79 Year
  Sex: Male
  Weight: 112.95 kg

DRUGS (13)
  1. ASPIRIN (ACETYLSALICYLIC ACID) [Concomitant]
     Active Substance: ASPIRIN
  2. LISINOPRIL (LISINOPRIL) [Concomitant]
     Active Substance: LISINOPRIL
  3. SMZ-TMP (BACTRIM) [Concomitant]
  4. FLUCONAZOLE. [Concomitant]
     Active Substance: FLUCONAZOLE
  5. ZANTAC [Concomitant]
     Active Substance: RANITIDINE HYDROCHLORIDE
  6. ACTOS [Concomitant]
     Active Substance: PIOGLITAZONE HYDROCHLORIDE
  7. ACYCLOVIR. [Concomitant]
     Active Substance: ACYCLOVIR
  8. METOPROLOL [Concomitant]
     Active Substance: METOPROLOL
  9. SIMVASTATIN. [Concomitant]
     Active Substance: SIMVASTATIN
  10. POMALYST [Suspect]
     Active Substance: POMALIDOMIDE
     Indication: PLASMA CELL MYELOMA
     Dosage: 4 MG, 21 IN 21 D, PO
     Route: 048
     Dates: start: 20140626
  11. FOLIC ACID. [Concomitant]
     Active Substance: FOLIC ACID
  12. DEXAMETHASONE. [Concomitant]
     Active Substance: DEXAMETHASONE
  13. HYDROCODONE/ACETAMINOPHEN (REMEDEINE /01204101/) (SOLUTION) [Concomitant]

REACTIONS (1)
  - Pneumonia [None]

NARRATIVE: CASE EVENT DATE: 20140712
